FAERS Safety Report 18415673 (Version 1)
Quarter: 2020Q4

REPORT INFORMATION
  Report Type: Spontaneous
  Country: US (occurrence: US)
  Receive Date: 20201022
  Receipt Date: 20201022
  Transmission Date: 20210114
  Serious: Yes (Hospitalization)
  Sender: FDA-Public Use
  Company Number: None

PATIENT
  Age: 82 Year
  Sex: Female
  Weight: 86.18 kg

DRUGS (1)
  1. IOHEXOL (IOHEXOL 12MG/ML SOLN,ORAL) [Suspect]
     Active Substance: IOHEXOL
     Indication: AORTIC ANEURYSM
     Dates: start: 20200922, end: 20200922

REACTIONS (3)
  - Anaphylactic reaction [None]
  - Contrast media allergy [None]
  - Cardio-respiratory arrest [None]

NARRATIVE: CASE EVENT DATE: 20200922
